FAERS Safety Report 8152781-1 (Version None)
Quarter: 2012Q1

REPORT INFORMATION
  Report Type: 
  Country: None (occurrence: None)
  Receive Date: 20120221
  Receipt Date: 20120208
  Transmission Date: 20120608
  Serious: Yes (Death, Hospitalization)
  Sender: FDA-Public Use
  Company Number: US-JNJFOC-20120205271

PATIENT
  Age: 25 Year
  Sex: Female
  Weight: 84.4 kg

DRUGS (4)
  1. ALBUTEROL [Concomitant]
     Indication: ASTHMA
  2. ADVAIR DISKUS 100/50 [Concomitant]
     Indication: ASTHMA
  3. TYLENOL PM [Suspect]
     Dosage: 100
     Route: 048
     Dates: start: 20120203, end: 20120203
  4. TYLENOL PM [Suspect]
     Indication: PRODUCT USED FOR UNKNOWN INDICATION
     Dosage: 25
     Route: 048
     Dates: start: 20120202, end: 20120202

REACTIONS (5)
  - RENAL FAILURE [None]
  - INTENTIONAL OVERDOSE [None]
  - HEPATIC ENCEPHALOPATHY [None]
  - ACUTE HEPATIC FAILURE [None]
  - COMPLETED SUICIDE [None]
